FAERS Safety Report 5592130-6 (Version None)
Quarter: 2008Q1

REPORT INFORMATION
  Report Type: 
  Country: None (occurrence: None)
  Receive Date: 20080115
  Receipt Date: 20070410
  Transmission Date: 20080703
  Serious: No
  Sender: FDA-Public Use
  Company Number: US-ABBOTT-07P-163-0406461-00

PATIENT
  Sex: Female
  Weight: 74.002 kg

DRUGS (1)
  1. ADVICOR [Suspect]
     Indication: BLOOD CHOLESTEROL INCREASED
     Route: 048
     Dates: start: 20060101, end: 20070409

REACTIONS (3)
  - FLUSHING [None]
  - RASH PRURITIC [None]
  - URINE OUTPUT DECREASED [None]
